FAERS Safety Report 10188136 (Version 1)
Quarter: 2014Q2

REPORT INFORMATION
  Report Type: Spontaneous
  Country: US (occurrence: US)
  Receive Date: 20140522
  Receipt Date: 20140522
  Transmission Date: 20141212
  Serious: No
  Sender: FDA-Public Use
  Company Number: US-SA-2013SA101148

PATIENT
  Age: 67 Year
  Sex: Female

DRUGS (1)
  1. LANTUS [Suspect]
     Indication: TYPE 2 DIABETES MELLITUS
     Dosage: DOSE:24 UNIT(S)
     Route: 051

REACTIONS (6)
  - Oral discomfort [Unknown]
  - Blister [Unknown]
  - Dysphonia [Unknown]
  - Blood glucose increased [Unknown]
  - Eye swelling [Unknown]
  - Swollen tongue [Unknown]
